FAERS Safety Report 12196094 (Version 1)
Quarter: 2016Q1

REPORT INFORMATION
  Report Type: Other
  Country: GB (occurrence: GB)
  Receive Date: 20160321
  Receipt Date: 20160321
  Transmission Date: 20160526
  Serious: Yes (Hospitalization)
  Sender: FDA-Public Use
  Company Number: GB-MYLANLABS-2016M1011077

PATIENT

DRUGS (16)
  1. GABAPENTIN. [Suspect]
     Active Substance: GABAPENTIN
     Dosage: 300 MG, QD
     Dates: start: 20151027, end: 201511
  2. GABAPENTIN. [Suspect]
     Active Substance: GABAPENTIN
     Dosage: 400 MG, QD
     Dates: start: 201511
  3. SOLIFENACIN [Concomitant]
     Active Substance: SOLIFENACIN
     Dosage: 1 DF, QD
     Dates: start: 20150820
  4. ALGESAL                            /00002701/ [Concomitant]
     Active Substance: ASPIRIN
     Dosage: 1 DF, UNK (APPLY AS NEEDED TO BE TAKEN THREE TIMES DAILY)
     Dates: start: 20151125
  5. CYCLIZINE [Concomitant]
     Active Substance: CYCLIZINE
     Dosage: 1 DF, UNK (ONE 3 TIMES DAILY WHEN NEEDED)
     Dates: start: 20160202, end: 20160212
  6. OMEPRAZOLE. [Concomitant]
     Active Substance: OMEPRAZOLE
     Dosage: 2 DF, QD
     Dates: start: 20150605
  7. AMITRIPTYLINE HYDROCHLORIDE. [Concomitant]
     Active Substance: AMITRIPTYLINE HYDROCHLORIDE
     Dosage: 1 DF, QD
     Dates: start: 20160301
  8. SALBUTAMOL [Concomitant]
     Active Substance: ALBUTEROL
     Dosage: 1-2 PUFFS UP TO THREE/FOUR TIMES A DAY
     Route: 055
     Dates: start: 20150605
  9. ZEROBASE                           /00103901/ [Concomitant]
     Dosage: USE AS DIRECTED
     Dates: start: 20150605
  10. FERROUS FUMARATE [Concomitant]
     Active Substance: FERROUS FUMARATE
     Dosage: 1 DF, BID
     Dates: start: 20160301
  11. PARACETAMOL + CAFFEINE [Concomitant]
     Dosage: TAKE 1 OR 2 4 TIMES/DAY
     Dates: start: 20150605
  12. QVAR [Concomitant]
     Active Substance: BECLOMETHASONE DIPROPIONATE
     Dosage: 1 DF, BID
     Route: 055
     Dates: start: 20150605
  13. TRAMADOL. [Concomitant]
     Active Substance: TRAMADOL
     Dosage: ONE OR TWO FOUR TIMES A DAY WHEN REQUIRED
     Dates: start: 20151125
  14. ICAPS                              /07499601/ [Concomitant]
     Dosage: UNK (EVERY DAY)
     Dates: start: 20150605
  15. ACCRETE D3 [Concomitant]
     Dosage: 2 DF, QD
     Dates: start: 20150605
  16. SPIRIVA [Concomitant]
     Active Substance: TIOTROPIUM BROMIDE MONOHYDRATE
     Dosage: 1 DF, QD
     Route: 055
     Dates: start: 20150605

REACTIONS (2)
  - Pancreatic pseudocyst [Unknown]
  - Pancreatitis acute [Recovered/Resolved with Sequelae]

NARRATIVE: CASE EVENT DATE: 20151111
